FAERS Safety Report 18526194 (Version 1)
Quarter: 2020Q4

REPORT INFORMATION
  Report Type: Spontaneous
  Country: US (occurrence: US)
  Receive Date: 20201119
  Receipt Date: 20201119
  Transmission Date: 20210114
  Serious: Yes (Death)
  Sender: FDA-Public Use
  Company Number: None

PATIENT
  Age: 79 Year
  Sex: Male

DRUGS (13)
  1. PREDNISONE. [Concomitant]
     Active Substance: PREDNISONE
  2. TORSEMIDE. [Concomitant]
     Active Substance: TORSEMIDE
  3. CARVEDILOL. [Concomitant]
     Active Substance: CARVEDILOL
  4. ROSIVASTATIN [Concomitant]
  5. AMITRIPTYLIN [Concomitant]
     Active Substance: AMITRIPTYLINE
  6. TRAMADOL. [Concomitant]
     Active Substance: TRAMADOL
  7. SPIRONOLACT [Concomitant]
     Active Substance: SPIRONOLACTONE
  8. ARIPIPRAZOLE. [Concomitant]
     Active Substance: ARIPIPRAZOLE
  9. BUSPIRONE [Concomitant]
     Active Substance: BUSPIRONE HYDROCHLORIDE
  10. LEVOFLOXACIN. [Concomitant]
     Active Substance: LEVOFLOXACIN
  11. BENZONATATE. [Concomitant]
     Active Substance: BENZONATATE
  12. WARFARIN [Concomitant]
     Active Substance: WARFARIN
  13. FORTEO [Suspect]
     Active Substance: TERIPARATIDE
     Indication: RHEUMATOID ARTHRITIS
     Dosage: ?          OTHER DOSE:20 UGM/UGM;?
     Route: 058
     Dates: start: 20180221

REACTIONS (1)
  - Death [None]

NARRATIVE: CASE EVENT DATE: 20201111
